FAERS Safety Report 9188173 (Version 1)
Quarter: 2012Q4

REPORT INFORMATION
  Report Type: 
  Country: US (occurrence: US)
  Receive Date: 20121123
  Receipt Date: 20121219
  Transmission Date: 20130627
  Serious: Yes (Other)
  Sender: FDA-Public Use
  Company Number: US-RB-046683-12

PATIENT
  Age: 63 Year
  Sex: Female

DRUGS (2)
  1. CEPACOL [Suspect]
     Indication: OROPHARYNGEAL PAIN
     Dosage: Patient took 1 lozenge on 09-NOV-2012
     Route: 048
     Dates: start: 20121109
  2. CEPACOL [Suspect]

REACTIONS (14)
  - Drug hypersensitivity [Unknown]
  - Lip swelling [Unknown]
  - Swelling face [Unknown]
  - Swollen tongue [Unknown]
  - Pharyngeal oedema [Unknown]
  - Product taste abnormal [Unknown]
  - Feeling abnormal [Unknown]
  - Dyspnoea [Unknown]
  - Swelling [Not Recovered/Not Resolved]
  - Skin tightness [Recovered/Resolved]
  - Blood glucose increased [Unknown]
  - Dizziness [Unknown]
  - Pruritus [Unknown]
  - Nausea [Unknown]
